FAERS Safety Report 4369364-1 (Version None)
Quarter: 2004Q2

REPORT INFORMATION
  Report Type: 
  Country: None (occurrence: None)
  Receive Date: 20040528
  Receipt Date: 20040518
  Transmission Date: 20050107
  Serious: Yes (Other)
  Sender: FDA-Public Use
  Company Number: US-JNJFOC-20040405681

PATIENT
  Age: 67 Year
  Sex: Female
  Weight: 68.0396 kg

DRUGS (6)
  1. DURAGESIC [Suspect]
     Indication: PAIN
     Dosage: 75 UG/HR, 1 IN 72 HOUR, TRANSDERMAL
     Route: 062
     Dates: start: 20030601, end: 20040425
  2. NEURONTIN [Concomitant]
  3. ZOLOFT [Concomitant]
  4. PREMARIN [Concomitant]
  5. CARDIZEM [Concomitant]
  6. HYZAAR [Concomitant]

REACTIONS (9)
  - APPLICATION SITE REACTION [None]
  - BALANCE DISORDER [None]
  - BLOOD PRESSURE DIASTOLIC INCREASED [None]
  - BLOOD PRESSURE INCREASED [None]
  - CEREBROVASCULAR ACCIDENT [None]
  - DIPLOPIA [None]
  - GAIT DISTURBANCE [None]
  - LACERATION [None]
  - SOMNOLENCE [None]
